FAERS Safety Report 9150047 (Version 1)
Quarter: 2013Q1

REPORT INFORMATION
  Report Type: Spontaneous
  Country: US (occurrence: None)
  Receive Date: 20130228
  Receipt Date: 20130228
  Transmission Date: 20140127
  Serious: Yes (Hospitalization)
  Sender: FDA-Public Use
  Company Number: None

PATIENT
  Sex: Male
  Weight: 75.5 kg

DRUGS (2)
  1. CARBOPLATIN [Suspect]
     Dates: end: 20130220
  2. PACLITAXEL (TAXOL) [Suspect]
     Dates: end: 20130220

REACTIONS (4)
  - Hemiparesis [None]
  - VIIth nerve paralysis [None]
  - Dysarthria [None]
  - Disorientation [None]
